FAERS Safety Report 15907491 (Version 2)
Quarter: 2019Q3

REPORT INFORMATION
  Report Type: Spontaneous
  Country: US (occurrence: US)
  Receive Date: 20190204
  Receipt Date: 20190708
  Transmission Date: 20191004
  Serious: Yes (Other)
  Sender: FDA-Public Use
  Company Number: US-ASTRAZENECA-2019SE18456

PATIENT
  Age: 18581 Day
  Sex: Male
  Weight: 101.2 kg

DRUGS (37)
  1. MAALOX ANTACID [Concomitant]
     Active Substance: ALUMINUM HYDROXIDE\DIMETHICONE\MAGNESIUM HYDROXIDE
  2. NEXIUM [Suspect]
     Active Substance: ESOMEPRAZOLE MAGNESIUM
     Indication: GASTROOESOPHAGEAL REFLUX DISEASE
     Route: 048
     Dates: start: 20080101, end: 20170201
  3. AMITRIPTYLINE [Concomitant]
     Active Substance: AMITRIPTYLINE
     Indication: NEURALGIA
     Dates: start: 2008, end: 2015
  4. ROLAIDS [Concomitant]
     Active Substance: CALCIUM CARBONATE\MAGNESIUM HYDROXIDE
  5. METOLAZONE. [Concomitant]
     Active Substance: METOLAZONE
  6. GLYBURIDE. [Concomitant]
     Active Substance: GLYBURIDE
  7. MYLANTA [Concomitant]
     Active Substance: ALUMINUM HYDROXIDE\DIMETHICONE\MAGNESIUM HYDROXIDE
  8. NIACIN. [Concomitant]
     Active Substance: NIACIN
  9. FUROSEMIDE. [Concomitant]
     Active Substance: FUROSEMIDE
     Indication: FLUID RETENTION
     Dates: start: 2008, end: 2016
  10. MONTELUKAST [Concomitant]
     Active Substance: MONTELUKAST SODIUM
     Indication: HYPERSENSITIVITY
     Dates: start: 2009, end: 2015
  11. VERAPAMIL [Concomitant]
     Active Substance: VERAPAMIL HYDROCHLORIDE
  12. DEXILANT [Suspect]
     Active Substance: DEXLANSOPRAZOLE
     Indication: GASTROOESOPHAGEAL REFLUX DISEASE
     Route: 065
     Dates: start: 20160902, end: 20170301
  13. ZANTAC [Concomitant]
     Active Substance: RANITIDINE HYDROCHLORIDE
  14. LORAZEPAM. [Concomitant]
     Active Substance: LORAZEPAM
  15. ZYPREXA [Concomitant]
     Active Substance: OLANZAPINE
  16. LEVAQUIN [Concomitant]
     Active Substance: LEVOFLOXACIN
  17. NEXIUM [Suspect]
     Active Substance: ESOMEPRAZOLE MAGNESIUM
     Indication: GASTROOESOPHAGEAL REFLUX DISEASE
     Route: 048
     Dates: start: 20080725, end: 20161012
  18. TAGAMET [Concomitant]
     Active Substance: CIMETIDINE
  19. FOLIC ACID. [Concomitant]
     Active Substance: FOLIC ACID
  20. VASCEPA [Concomitant]
     Active Substance: ICOSAPENT ETHYL
  21. PREDNISONE. [Concomitant]
     Active Substance: PREDNISONE
  22. MUCINEX [Concomitant]
     Active Substance: GUAIFENESIN
  23. DIPROLENE [Concomitant]
     Active Substance: BETAMETHASONE DIPROPIONATE
  24. HYDROCODONE [Concomitant]
     Active Substance: HYDROCODONE
     Indication: PAIN
     Dates: start: 2008, end: 2011
  25. VENTOLIN [Concomitant]
     Active Substance: ALBUTEROL SULFATE
     Indication: CHRONIC OBSTRUCTIVE PULMONARY DISEASE
     Dates: start: 2008
  26. LANTUS [Concomitant]
     Active Substance: INSULIN GLARGINE
     Indication: DIABETES MELLITUS
     Dates: start: 2010
  27. SPIRIVA [Concomitant]
     Active Substance: TIOTROPIUM BROMIDE MONOHYDRATE
  28. WARFARIN [Concomitant]
     Active Substance: WARFARIN
  29. ONDANSETRON [Concomitant]
     Active Substance: ONDANSETRON
  30. LISINOPRIL. [Concomitant]
     Active Substance: LISINOPRIL
  31. BIAXIN [Concomitant]
     Active Substance: CLARITHROMYCIN
  32. NEXIUM [Suspect]
     Active Substance: ESOMEPRAZOLE MAGNESIUM
     Indication: GASTROOESOPHAGEAL REFLUX DISEASE
     Route: 048
     Dates: start: 20080725, end: 20160902
  33. AMLODIPINE [Concomitant]
     Active Substance: AMLODIPINE BESYLATE
     Indication: HYPERTENSION
     Dates: start: 2009, end: 2015
  34. PEPCID [Concomitant]
     Active Substance: FAMOTIDINE
  35. NOVOLOG [Concomitant]
     Active Substance: INSULIN ASPART
  36. PENTASA [Concomitant]
     Active Substance: MESALAMINE
  37. TUMS [Concomitant]
     Active Substance: CALCIUM CARBONATE

REACTIONS (2)
  - Renal failure [Unknown]
  - Chronic kidney disease [Not Recovered/Not Resolved]

NARRATIVE: CASE EVENT DATE: 20150707
